FAERS Safety Report 4720478-3 (Version None)
Quarter: 2005Q3

REPORT INFORMATION
  Report Type: 
  Country: None (occurrence: None)
  Receive Date: 20050721
  Receipt Date: 20040816
  Transmission Date: 20060218
  Serious: No
  Sender: FDA-Public Use
  Company Number: US-BRISTOL-MYERS SQUIBB COMPANY-12672267

PATIENT
  Age: 64 Year
  Sex: Female
  Weight: 90 kg

DRUGS (4)
  1. GLUCOVANCE [Suspect]
     Indication: DIABETES MELLITUS
     Route: 048
     Dates: start: 20040711
  2. CARDIZEM SR [Concomitant]
     Dosage: DURATION OF THERAPY:  ^SEVERAL YEARS^
  3. CAPOZIDE [Concomitant]
     Dosage: DURATION OF THERAPY:  ^SEVERAL YEARS^
  4. PROTONIX [Concomitant]
     Dosage: DURATION OF THERAPY:  ^SEVERAL YEARS^

REACTIONS (1)
  - DIARRHOEA [None]
